FAERS Safety Report 8458747-6 (Version None)
Quarter: 2012Q2

REPORT INFORMATION
  Report Type: 
  Country: None (occurrence: None)
  Receive Date: 20120622
  Receipt Date: 20120615
  Transmission Date: 20120825
  Serious: Yes (Hospitalization)
  Sender: FDA-Public Use
  Company Number: FR-UCBSA-059802

PATIENT
  Age: 91 Year
  Sex: Female

DRUGS (1)
  1. KEPPRA [Suspect]
     Indication: EPILEPSY
     Dosage: 1 G DAILY IN MONOTHERAPY
     Route: 048

REACTIONS (1)
  - PSYCHIATRIC DECOMPENSATION [None]
